FAERS Safety Report 7073206-3 (Version None)
Quarter: 2010Q4

REPORT INFORMATION
  Report Type: 
  Country: None (occurrence: None)
  Receive Date: 20101029
  Receipt Date: 20100510
  Transmission Date: 20110411
  Serious: No
  Sender: FDA-Public Use
  Company Number: A0858933A

PATIENT
  Sex: Female

DRUGS (2)
  1. ADVAIR DISKUS 100/50 [Suspect]
     Indication: MULTIPLE ALLERGIES
     Dosage: 1PUFF TWICE PER DAY
     Route: 055
     Dates: start: 20100101
  2. NASAL SPRAY [Concomitant]

REACTIONS (2)
  - CANDIDIASIS [None]
  - GINGIVAL DISORDER [None]
